FAERS Safety Report 10060265 (Version 1)
Quarter: 2014Q2

REPORT INFORMATION
  Report Type: Spontaneous
  Country: FR (occurrence: FR)
  Receive Date: 20140404
  Receipt Date: 20140404
  Transmission Date: 20141212
  Serious: Yes (Other)
  Sender: FDA-Public Use
  Company Number: FR-ASTRAZENECA-2014SE22260

PATIENT
  Age: 875 Month
  Sex: Female

DRUGS (4)
  1. CRESTOR [Suspect]
     Indication: PROPHYLAXIS
     Route: 048
     Dates: start: 2011, end: 201403
  2. LEVOTHYROX [Concomitant]
     Indication: HYPOTHYROIDISM
  3. DIAMICRON [Concomitant]
     Indication: DIABETES MELLITUS
  4. ACTAZID [Concomitant]

REACTIONS (3)
  - Hepatocellular injury [Not Recovered/Not Resolved]
  - Blood creatine phosphokinase increased [Not Recovered/Not Resolved]
  - Myalgia [Not Recovered/Not Resolved]
